FAERS Safety Report 15099004 (Version 1)
Quarter: 2018Q3

REPORT INFORMATION
  Report Type: Spontaneous
  Country: US (occurrence: US)
  Receive Date: 20180702
  Receipt Date: 20180702
  Transmission Date: 20181010
  Serious: Yes (Other)
  Sender: FDA-Public Use
  Company Number: US-PFIZER INC-2018262213

PATIENT
  Sex: Female

DRUGS (10)
  1. HYDROCHLOROTHIAZIDE. [Concomitant]
     Active Substance: HYDROCHLOROTHIAZIDE
     Dosage: 25 MG, 1X/DAY, 25 MG TABLET BY MOUTH 1 TIME DAILY
     Route: 048
  2. TRAZODONE HYDROCHLORIDE. [Concomitant]
     Active Substance: TRAZODONE HYDROCHLORIDE
     Indication: PAIN
     Dosage: 300 MG, AS NEEDED, 100 MG TABLET, 3 TABLETS BY MOUTH DAILY, OR AT BEDTIME AS NEEDED
     Route: 048
  3. LAMOTRIGINE. [Concomitant]
     Active Substance: LAMOTRIGINE
     Indication: BIPOLAR DISORDER
     Dosage: 300 MG, DAILY, 150 MG TABLET, 2 TABLETS BY MOUTH DAILY
     Route: 048
  4. GABAPENTIN. [Suspect]
     Active Substance: GABAPENTIN
     Dosage: 4800 MG, DAILY, TAKING UP TO 6 TABLETS PER DAY
  5. TRAZODONE HYDROCHLORIDE. [Concomitant]
     Active Substance: TRAZODONE HYDROCHLORIDE
     Indication: DEPRESSION
  6. GABAPENTIN. [Suspect]
     Active Substance: GABAPENTIN
     Indication: PAIN
     Dosage: 800 MG, 3X/DAY
     Route: 048
  7. HYDROXYZINE [Concomitant]
     Active Substance: HYDROXYZINE HYDROCHLORIDE
     Indication: ANXIETY
     Dosage: 50 MG, AS NEEDED, 50 MG TABLET BY MOUTH 3 TIMES DAILY AS NEEDED
     Route: 048
  8. ATORVASTATIN CALCIUM. [Concomitant]
     Active Substance: ATORVASTATIN CALCIUM
     Dosage: 80 MG, 1X/DAY, 80 MG TABLET BY MOUTH 1 TIME DAILY IN AM
     Route: 048
  9. VOLTAREN [Concomitant]
     Active Substance: DICLOFENAC SODIUM
     Indication: PAIN
     Dosage: CREAM APPLIED TO KNEES AS NEEDED
  10. ASPIRIN. [Concomitant]
     Active Substance: ASPIRIN
     Indication: CARDIAC DISORDER
     Dosage: 81 MG, 1X/DAY, 81 MG TABLET BY MOUTH 1 TIME DAILY
     Route: 048

REACTIONS (7)
  - Drug ineffective for unapproved indication [Unknown]
  - Contusion [Unknown]
  - Intentional overdose [Unknown]
  - Fall [Unknown]
  - Arthralgia [Unknown]
  - Back pain [Unknown]
  - Nausea [Unknown]
